FAERS Safety Report 8511010-7 (Version None)
Quarter: 2012Q3

REPORT INFORMATION
  Report Type: 
  Country: None (occurrence: None)
  Receive Date: 20120710
  Receipt Date: 20120710
  Transmission Date: 20120928
  Serious: No
  Sender: FDA-Public Use
  Company Number: None

PATIENT
  Age: 70 Year
  Sex: Female

DRUGS (1)
  1. TEGRETOL-ER, 200MG, NOVARTIS [Suspect]
     Indication: EPILEPSY
     Dosage: 2 TABLETS, TWICE A DAY, ORALLY
     Route: 048

REACTIONS (14)
  - THIRST [None]
  - BLOOD TEST ABNORMAL [None]
  - LETHARGY [None]
  - PRODUCT QUALITY ISSUE [None]
  - NAUSEA [None]
  - DYSSTASIA [None]
  - HEAD INJURY [None]
  - DIZZINESS [None]
  - LIMB INJURY [None]
  - JOINT INJURY [None]
  - VISION BLURRED [None]
  - FALL [None]
  - DRUG DISPENSING ERROR [None]
  - BALANCE DISORDER [None]
